FAERS Safety Report 8544820 (Version 2)
Quarter: 2013Q2

REPORT INFORMATION
  Report Type: Spontaneous
  Country: US (occurrence: None)
  Receive Date: 20120315
  Receipt Date: 20130107
  Transmission Date: 20140414
  Serious: Yes (Other)
  Sender: FDA-Public Use
  Company Number: PHHY2011US09903

PATIENT
  Sex: Female

DRUGS (1)
  1. GILENYA (FTY) CAPSULE, 0.5MG [Suspect]
     Indication: MULTIPLE SCLEROSIS
     Dosage: 0.5 MG, QD, ORAL
     Route: 048
     Dates: start: 20110117

REACTIONS (6)
  - FATIGUE [None]
  - DIZZINESS [None]
  - Balance disorder [None]
  - Hepatic enzyme abnormal [None]
  - Feeling abnormal [None]
  - Muscular weakness [None]
